FAERS Safety Report 7012064-X (Version None)
Quarter: 2010Q3

REPORT INFORMATION
  Report Type: 
  Country: None (occurrence: None)
  Receive Date: 20100924
  Receipt Date: 20100802
  Transmission Date: 20110219
  Serious: Yes (Other)
  Sender: FDA-Public Use
  Company Number: US-JNJFOC-20100800857

PATIENT
  Sex: Female

DRUGS (2)
  1. DOXIL [Suspect]
     Indication: ENDOMETRIAL CANCER RECURRENT
     Route: 042
  2. CARBOPLATIN [Suspect]
     Indication: ENDOMETRIAL CANCER RECURRENT
     Route: 065

REACTIONS (1)
  - SYNCOPE [None]
